FAERS Safety Report 21887353 (Version 1)
Quarter: 2023Q1

REPORT INFORMATION
  Report Type: Spontaneous
  Country: US (occurrence: US)
  Receive Date: 20230119
  Receipt Date: 20230119
  Transmission Date: 20230418
  Serious: Yes (Other)
  Sender: FDA-Public Use
  Company Number: US-MALLINCKRODT-T202300153

PATIENT
  Sex: Female

DRUGS (1)
  1. H.P. ACTHAR [Suspect]
     Active Substance: CORTICOTROPIN
     Indication: Rheumatoid nodule
     Dosage: 80 UNITS, TWICE WEEKLY
     Route: 058
     Dates: start: 202210

REACTIONS (1)
  - Thrombosis [Not Recovered/Not Resolved]
